FAERS Safety Report 4808360-4 (Version None)
Quarter: 2005Q4

REPORT INFORMATION
  Report Type: 
  Country: None (occurrence: None)
  Receive Date: 20051021
  Receipt Date: 20051012
  Transmission Date: 20060501
  Serious: Yes (Life-Threatening, Other)
  Sender: FDA-Public Use
  Company Number: 2005128959

PATIENT
  Age: 61 Year
  Sex: Female

DRUGS (10)
  1. NORPACE CR           (DISOPYRAMIDE PHOSPHATE) [Suspect]
     Indication: ARRHYTHMIA
     Dosage: 300 MG (BID), ORAL
     Route: 048
     Dates: start: 20050822, end: 20050904
  2. PIMENOL (PIRMENOL HYDROCHLORIDE) [Suspect]
     Indication: ARRHYTHMIA
     Dosage: (BID), ORAL
     Route: 048
     Dates: start: 20050905, end: 20050909
  3. CARNACULIN (PANCREAS EXTRACT) [Concomitant]
  4. KETAS (IBUDILAST) [Concomitant]
  5. PAXIL [Concomitant]
  6. MEILAX (ETHYL LOFLAZEPATE) [Concomitant]
  7. ROPHYPNOL (FLUNITRAZEPAM) [Concomitant]
  8. DRAMAMINE (DIMENHYDRINATE) [Concomitant]
  9. DOMPERIDONE (DOMPERIDONE) [Concomitant]
  10. SEDAPRAN (PRAZEPAM) [Concomitant]

REACTIONS (7)
  - ATRIAL FIBRILLATION [None]
  - BRADYCARDIA [None]
  - CARDIAC ARREST [None]
  - DRUG INEFFECTIVE [None]
  - ELECTROCARDIOGRAM QT PROLONGED [None]
  - SYNCOPE [None]
  - VENTRICULAR EXTRASYSTOLES [None]
